FAERS Safety Report 14330170 (Version 2)
Quarter: 2018Q1

REPORT INFORMATION
  Report Type: Spontaneous
  Country: CH (occurrence: CH)
  Receive Date: 20171227
  Receipt Date: 20180117
  Transmission Date: 20180509
  Serious: Yes (Hospitalization)
  Sender: FDA-Public Use
  Company Number: CH-PFIZER INC-2017545544

PATIENT
  Age: 86 Year
  Sex: Female
  Weight: 63 kg

DRUGS (20)
  1. TOREM /01036501/ [Interacting]
     Active Substance: TORSEMIDE
     Dosage: 50 MG, 1X/DAY 1-0-0
     Dates: start: 20171122, end: 20171129
  2. TOREM /01036501/ [Interacting]
     Active Substance: TORSEMIDE
     Dosage: 30 MG, 1X/DAY 1-0-0
     Dates: start: 20171130, end: 20171205
  3. HUMALOG [Concomitant]
     Active Substance: INSULIN LISPRO
     Dosage: 1 DF, UNK
  4. FRAGMIN [Concomitant]
     Active Substance: DALTEPARIN SODIUM
     Dosage: 12500 IU, 1X/DAY 0-0-0-1
  5. ALDACTONE [Suspect]
     Active Substance: SPIRONOLACTONE
     Dosage: 12.5 MG, 1X/DAY 1-0-0
     Dates: end: 20171206
  6. TRIATEC /00885601/ [Concomitant]
     Active Substance: RAMIPRIL
     Dosage: 5 MG, 2X/DAY 1.5-0-0.5
  7. DIGOXIN. [Interacting]
     Active Substance: DIGOXIN
     Dosage: 0.5 MG, SINGLE
     Route: 040
     Dates: start: 20171110, end: 20171110
  8. ATORVASTATIN CALCIUM. [Interacting]
     Active Substance: ATORVASTATIN CALCIUM
     Dosage: 40 MG, 1X/DAY
     Dates: end: 20171205
  9. PANTOZOL [Concomitant]
     Active Substance: PANTOPRAZOLE SODIUM
     Dosage: 20 MG, UNK
     Dates: start: 20171205
  10. HALDOL [Concomitant]
     Active Substance: HALOPERIDOL
     Dosage: 5 GTT, MAX 3X/24H IN RESERVE
     Dates: start: 20171122
  11. INSULATARD /00646002/ [Concomitant]
     Active Substance: INSULIN HUMAN
     Dosage: 8 IU, 1X/DAY (8-0-0)
  12. NOVALGIN (METAMIZOLE SODIUM) [Concomitant]
     Active Substance: METAMIZOLE SODIUM
     Dosage: 20 GTT, 4X/DAY 20-20-20-20
     Dates: end: 20171205
  13. DIGOXIN. [Interacting]
     Active Substance: DIGOXIN
     Dosage: 0.125 MG, 1X/DAY
     Route: 048
     Dates: start: 20171111, end: 20171116
  14. BISOPROLOL [Interacting]
     Active Substance: BISOPROLOL
     Dosage: 10 MG, 1X/DAY 1-0-0
     Dates: end: 20171206
  15. PANTOZOL [Concomitant]
     Active Substance: PANTOPRAZOLE SODIUM
     Dosage: 40 MG, 1X/DAY 0-0-1
     Dates: end: 20171204
  16. DIGOXIN. [Interacting]
     Active Substance: DIGOXIN
     Dosage: 0.25 MG, 1X/DAY
     Route: 048
     Dates: start: 20171117, end: 20171206
  17. KALCIPOS [Interacting]
     Active Substance: CALCIUM CARBONATE
     Dosage: 1 DF, 1X/DAY 1-0-0
     Dates: end: 20171206
  18. METFIN [Concomitant]
     Active Substance: METFORMIN HYDROCHLORIDE
     Dosage: UNK
     Dates: end: 20171121
  19. AMLODIPIN /00972401/ [Concomitant]
     Active Substance: AMLODIPINE BESYLATE
     Dosage: 5 MG, 1X/DAY (0-0-1)
  20. MOTILIUM [Concomitant]
     Active Substance: DOMPERIDONE
     Dosage: 10 MG, 3X/DAY 1-1-1-0
     Dates: start: 20171205

REACTIONS (4)
  - Toxicity to various agents [Recovering/Resolving]
  - Overdose [Unknown]
  - Drug interaction [Recovered/Resolved]
  - Nodal arrhythmia [Recovered/Resolved]

NARRATIVE: CASE EVENT DATE: 2017
